FAERS Safety Report 21244035 (Version 2)
Quarter: 2022Q3

REPORT INFORMATION
  Report Type: Spontaneous
  Country: US (occurrence: US)
  Receive Date: 20220823
  Receipt Date: 20220918
  Transmission Date: 20221026
  Serious: No
  Sender: FDA-Public Use
  Company Number: US-JNJFOC-20220830541

PATIENT
  Sex: Female

DRUGS (2)
  1. CONCERTA [Suspect]
     Active Substance: METHYLPHENIDATE HYDROCHLORIDE
     Indication: Attention deficit hyperactivity disorder
     Dosage: EVERY MORNING
     Route: 048
     Dates: start: 20220811
  2. KLONOPIN [Concomitant]
     Active Substance: CLONAZEPAM
     Indication: Product used for unknown indication

REACTIONS (7)
  - Hypersomnia [Unknown]
  - Dry mouth [Unknown]
  - Irritability [Unknown]
  - Anxiety [Unknown]
  - Drug ineffective [Unknown]
  - Disturbance in attention [Unknown]
  - Abnormal behaviour [Unknown]
